FAERS Safety Report 15401329 (Version 1)
Quarter: 2018Q3

REPORT INFORMATION
  Report Type: Spontaneous
  Country: US (occurrence: US)
  Receive Date: 20180914
  Receipt Date: 20180914
  Transmission Date: 20181010
  Serious: Yes (Other)
  Sender: FDA-Public Use
  Company Number: None

PATIENT
  Age: 64 Year
  Sex: Female
  Weight: 73.48 kg

DRUGS (15)
  1. COMBIVENT [Concomitant]
     Active Substance: ALBUTEROL SULFATE\IPRATROPIUM BROMIDE
  2. DILTIAZEM ER [Concomitant]
     Active Substance: DILTIAZEM
  3. SINGULAIR [Concomitant]
     Active Substance: MONTELUKAST SODIUM
  4. PREMARIN [Concomitant]
     Active Substance: ESTROGENS, CONJUGATED
  5. ZANTAC [Concomitant]
     Active Substance: RANITIDINE HYDROCHLORIDE
  6. SUMATRIPTAN. [Concomitant]
     Active Substance: SUMATRIPTAN
  7. MELATONIN [Concomitant]
     Active Substance: MELATONIN
  8. CARISOPRODOL. [Concomitant]
     Active Substance: CARISOPRODOL
  9. ALLEGRA?D [Concomitant]
     Active Substance: FEXOFENADINE\PSEUDOEPHEDRINE
  10. MULTIVITAMIN [Concomitant]
     Active Substance: VITAMINS
  11. L THYROXINE [Concomitant]
     Active Substance: LEVOTHYROXINE SODIUM
  12. ALEVE [Concomitant]
     Active Substance: NAPROXEN SODIUM
  13. SUPREP BOWEL PREP [Suspect]
     Active Substance: MAGNESIUM SULFATE\POTASSIUM SULFATE\SODIUM SULFATE
     Indication: COLONOSCOPY
     Dosage: ?          QUANTITY:2 DF DOSAGE FORM;?
     Route: 048
     Dates: start: 20180816, end: 20180816
  14. BIOTIN [Concomitant]
     Active Substance: BIOTIN
  15. ADVAIR DISKUS [Concomitant]
     Active Substance: FLUTICASONE PROPIONATE\SALMETEROL XINAFOATE

REACTIONS (4)
  - Dysstasia [None]
  - Blood potassium decreased [None]
  - Vomiting [None]
  - Abdominal pain [None]

NARRATIVE: CASE EVENT DATE: 20180816
